FAERS Safety Report 4553771-8 (Version None)
Quarter: 2005Q1

REPORT INFORMATION
  Report Type: 
  Country: None (occurrence: None)
  Receive Date: 20050113
  Receipt Date: 20050113
  Transmission Date: 20050727
  Serious: Yes (Other)
  Sender: FDA-Public Use
  Company Number: None

PATIENT
  Age: 45 Year
  Sex: Female
  Weight: 48.9885 kg

DRUGS (5)
  1. CORICIDIN D TABLETS [Suspect]
     Indication: NASOPHARYNGITIS
     Dosage: 1 TAB ORAL
     Route: 048
     Dates: start: 19980420, end: 19980503
  2. SYNTHROID [Concomitant]
  3. MULTI-VITAMINS [Concomitant]
  4. PSEUDOEPHEDRINE HCL [Concomitant]
  5. CO-TYLENOL [Concomitant]

REACTIONS (3)
  - AMNESIA [None]
  - CEREBROVASCULAR ACCIDENT [None]
  - DISTURBANCE IN ATTENTION [None]
